FAERS Safety Report 13640033 (Version 1)
Quarter: 2017Q2

REPORT INFORMATION
  Report Type: Spontaneous
  Country: US (occurrence: US)
  Receive Date: 20170609
  Receipt Date: 20170609
  Transmission Date: 20170830
  Serious: No
  Sender: FDA-Public Use
  Company Number: US-ROCHE-773266

PATIENT
  Sex: Female

DRUGS (2)
  1. KLONOPIN [Suspect]
     Active Substance: CLONAZEPAM
     Indication: PRODUCT USED FOR UNKNOWN INDICATION
     Route: 048
  2. CLONAZEPAM. [Suspect]
     Active Substance: CLONAZEPAM
     Indication: PRODUCT USED FOR UNKNOWN INDICATION
     Route: 048

REACTIONS (7)
  - Drug effect decreased [Unknown]
  - Agitation [Recovered/Resolved]
  - Palpitations [Recovered/Resolved]
  - Fluid retention [Recovered/Resolved]
  - Dry mouth [Recovering/Resolving]
  - Weight increased [Recovered/Resolved]
  - Malaise [Recovered/Resolved]
